FAERS Safety Report 7171009-2 (Version None)
Quarter: 2010Q4

REPORT INFORMATION
  Report Type: 
  Country: None (occurrence: None)
  Receive Date: 20101217
  Receipt Date: 20101213
  Transmission Date: 20110411
  Serious: Yes (Hospitalization, Other)
  Sender: FDA-Public Use
  Company Number: US-B.I. PHARMACEUTICALS,INC./RIDGEFIELD-2010-BP-11370BP

PATIENT
  Sex: Female

DRUGS (12)
  1. SPIRIVA [Suspect]
     Indication: CHRONIC OBSTRUCTIVE PULMONARY DISEASE
     Dosage: 18 MCG
     Route: 055
     Dates: start: 20060101
  2. COMBIVENT [Suspect]
     Indication: CHRONIC OBSTRUCTIVE PULMONARY DISEASE
     Route: 055
     Dates: end: 20100901
  3. LOBOXIN [Concomitant]
     Indication: HYPOTHYROIDISM
     Dosage: 88 MCG
     Route: 048
  4. COUMADIN [Concomitant]
     Indication: THROMBOSIS
     Route: 048
     Dates: start: 20020101, end: 20100805
  5. PRILOSEC [Concomitant]
     Indication: GASTROOESOPHAGEAL REFLUX DISEASE
     Dosage: 40 MG
     Route: 048
  6. ASPIRIN [Concomitant]
     Indication: PROPHYLAXIS
     Dosage: 81 MG
     Route: 048
  7. BUMEX [Concomitant]
     Indication: FLUID RETENTION
     Dosage: 0.5 MG
     Route: 048
  8. KLORA-CON [Concomitant]
     Indication: PROPHYLAXIS
     Route: 048
  9. LOTENSIN [Concomitant]
     Indication: HYPERTENSION
     Dosage: 10 MG
     Route: 048
     Dates: end: 20100801
  10. PREVACHOL [Concomitant]
     Indication: BLOOD CHOLESTEROL INCREASED
     Dosage: 80 MG
     Route: 048
  11. SYMBICORT [Concomitant]
     Indication: CHRONIC OBSTRUCTIVE PULMONARY DISEASE
     Route: 055
     Dates: end: 20100801
  12. OXYGEN [Concomitant]
     Indication: CHRONIC OBSTRUCTIVE PULMONARY DISEASE
     Route: 055
     Dates: start: 20030101

REACTIONS (5)
  - AMNESIA [None]
  - CEREBROVASCULAR ACCIDENT [None]
  - FIBROMYALGIA [None]
  - SPEECH DISORDER [None]
  - TACHYCARDIA [None]
